FAERS Safety Report 22760323 (Version 6)
Quarter: 2023Q4

REPORT INFORMATION
  Report Type: Spontaneous
  Country: US (occurrence: US)
  Receive Date: 20230728
  Receipt Date: 20231128
  Transmission Date: 20240110
  Serious: Yes (Other)
  Sender: FDA-Public Use
  Company Number: US-PFIZER INC-PV202300126961

PATIENT
  Age: 57 Year
  Sex: Female

DRUGS (1)
  1. IBRANCE [Suspect]
     Active Substance: PALBOCICLIB
     Indication: Breast cancer
     Dosage: 125 MG
     Dates: end: 202310

REACTIONS (4)
  - Sinusitis bacterial [Unknown]
  - Second primary malignancy [Unknown]
  - Papillary thyroid cancer [Unknown]
  - Fatigue [Not Recovered/Not Resolved]
